FAERS Safety Report 4473904-1 (Version None)
Quarter: 2004Q4

REPORT INFORMATION
  Report Type: 
  Country: None (occurrence: None)
  Receive Date: 20041008
  Receipt Date: 20041008
  Transmission Date: 20050328
  Serious: Yes (Other)
  Sender: FDA-Public Use
  Company Number: None

PATIENT
  Age: 20 Year
  Sex: Female
  Weight: 68.0396 kg

DRUGS (1)
  1. ACCUTANE [Suspect]
     Indication: ACNE CYSTIC
     Dosage: ONCE A DAY 1 TO MG 1 ORAL
     Route: 048
     Dates: start: 20040410, end: 20040907

REACTIONS (9)
  - EATING DISORDER [None]
  - EYE DISCHARGE [None]
  - EYE INFLAMMATION [None]
  - EYE PAIN [None]
  - EYE PRURITUS [None]
  - EYE REDNESS [None]
  - NAUSEA [None]
  - PHOTOPHOBIA [None]
  - RASH ERYTHEMATOUS [None]
